FAERS Safety Report 17552327 (Version 5)
Quarter: 2021Q1

REPORT INFORMATION
  Report Type: Report from Study
  Country: DE (occurrence: DE)
  Receive Date: 20200317
  Receipt Date: 20210318
  Transmission Date: 20210419
  Serious: Yes (Hospitalization, Other)
  Sender: FDA-Public Use
  Company Number: DE-AMGEN-DEUCT2020042982

PATIENT
  Age: 43 Year
  Sex: Female
  Weight: 100 kg

DRUGS (15)
  1. LENALIDOMIDE [Suspect]
     Active Substance: LENALIDOMIDE
     Indication: PLASMA CELL MYELOMA
     Dosage: 25 MILLIGRAM, PER CHEMO REGIM
     Route: 048
     Dates: start: 20190926
  2. DEXAMETHASONE. [Suspect]
     Active Substance: DEXAMETHASONE
     Dosage: UNK, PER CHEMO REGIM
     Route: 042
     Dates: start: 20200324
  3. ASPIRIN. [Concomitant]
     Active Substance: ASPIRIN
     Indication: ANTICOAGULANT THERAPY
     Dosage: 100 MILLIGRAM, QD
     Route: 048
     Dates: start: 20190926
  4. CARFILZOMIB [Suspect]
     Active Substance: CARFILZOMIB
     Indication: PLASMA CELL MYELOMA
     Dosage: 20 MILLIGRAM/SQ. METER, PER CHEMO REGIM
     Route: 042
     Dates: start: 20190926
  5. ACICLOVIR [Concomitant]
     Active Substance: ACYCLOVIR
     Indication: ANTIVIRAL PROPHYLAXIS
     Dosage: 400 MILLIGRAM, BID
     Route: 048
     Dates: start: 20190926
  6. PANTOPRAZOL [PANTOPRAZOLE] [Concomitant]
     Active Substance: PANTOPRAZOLE
     Indication: PROPHYLAXIS
     Dosage: 20 MILLIGRAM, QD
     Route: 048
     Dates: start: 20190926
  7. LENALIDOMIDE [Suspect]
     Active Substance: LENALIDOMIDE
     Dosage: UNK UNK, PER CHEMO REGIM
     Route: 048
     Dates: start: 20200324
  8. ELOTUZUMAB. [Suspect]
     Active Substance: ELOTUZUMAB
     Indication: PLASMA CELL MYELOMA
     Dosage: 1000 MILLIGRAM, PER CHEMO REGIM
     Route: 042
     Dates: start: 20190926
  9. CARFILZOMIB [Suspect]
     Active Substance: CARFILZOMIB
     Dosage: 36 MILLIGRAM/SQ. METER, PER CHEMO REGIM
     Route: 042
  10. DEXAMETHASONE. [Suspect]
     Active Substance: DEXAMETHASONE
     Dosage: 8 MILLIGRAM, PER CHEMO REGIM
     Route: 042
  11. NOVAMINSULFON [Concomitant]
     Active Substance: METAMIZOLE
     Indication: PAIN
     Dosage: 500 MILLIGRAM, AS NECESSARY (UPTO 4 / DAY)
     Route: 048
     Dates: start: 20190915
  12. DEXAMETHASONE. [Suspect]
     Active Substance: DEXAMETHASONE
     Indication: PLASMA CELL MYELOMA
     Dosage: 28 MILLIGRAM, PER CHEMO REGIM
     Route: 048
     Dates: start: 20190926
  13. COTRIMOXAZOLE [Concomitant]
     Active Substance: SULFAMETHOXAZOLE\TRIMETHOPRIM
     Indication: PROPHYLAXIS
     Dosage: 960 MILLIGRAM, Q3WK
     Route: 048
     Dates: start: 20190926
  14. OXYCODON [Concomitant]
     Active Substance: OXYCODONE
     Indication: PAIN
     Dosage: 10 MILLIGRAM, BID
     Route: 048
     Dates: start: 20190915
  15. CALCILAC [CALCIUM LACTATE] [Concomitant]
     Dosage: 500 MILLIGRAM/400 IE, ^DAILY^
     Route: 048
     Dates: start: 20190926

REACTIONS (1)
  - Haemolysis [Recovered/Resolved]

NARRATIVE: CASE EVENT DATE: 20200311
